FAERS Safety Report 18737280 (Version 2)
Quarter: 2021Q1

REPORT INFORMATION
  Report Type: Report from Study
  Country: FR (occurrence: FR)
  Receive Date: 20210113
  Receipt Date: 20210215
  Transmission Date: 20210419
  Serious: Yes (Life-Threatening, Hospitalization, Other)
  Sender: FDA-Public Use
  Company Number: NVSC2020FR226193

PATIENT
  Age: 7 Year
  Sex: Female
  Weight: 17 kg

DRUGS (35)
  1. TOPOTECAN [Suspect]
     Active Substance: TOPOTECAN HYDROCHLORIDE
     Dosage: 0.52 MG
     Route: 042
     Dates: start: 20210119, end: 20210123
  2. VENETOCLAX. [Suspect]
     Active Substance: VENETOCLAX
     Dosage: 250 MG, QD
     Route: 048
     Dates: start: 20200824, end: 20200902
  3. LENOGRASTIM [Concomitant]
     Active Substance: LENOGRASTIM
     Indication: PRODUCT USED FOR UNKNOWN INDICATION
     Dosage: 30 MCG, 1 IN 1 D
     Route: 058
     Dates: start: 20210123, end: 20210131
  4. ATARAX [Concomitant]
     Active Substance: HYDROXYZINE HYDROCHLORIDE
     Indication: VOMITING
     Dosage: 10 MG, QD
     Route: 065
     Dates: start: 20200707
  5. VENETOCLAX. [Suspect]
     Active Substance: VENETOCLAX
     Indication: NEUROBLASTOMA
     Dosage: 250 MG 1 IN 1 D (TABLET FOR ORAL SUSPENSION)
     Route: 048
     Dates: start: 20200707, end: 20200715
  6. VENETOCLAX. [Suspect]
     Active Substance: VENETOCLAX
     Dosage: 250 MG, QD
     Route: 048
     Dates: start: 20200706, end: 20200706
  7. VENETOCLAX. [Suspect]
     Active Substance: VENETOCLAX
     Dosage: 250 MG, QD
     Route: 048
     Dates: start: 20200707, end: 20200712
  8. INNOHEP [Concomitant]
     Active Substance: TINZAPARIN SODIUM
     Indication: ANTICOAGULANT THERAPY
     Dosage: UNK
     Route: 058
  9. TOPOTECAN [Suspect]
     Active Substance: TOPOTECAN HYDROCHLORIDE
     Dosage: 0.75 MG/M2, QD
     Route: 042
     Dates: start: 20200730, end: 20200803
  10. CYCLOPHOSPHAMIDE. [Suspect]
     Active Substance: CYCLOPHOSPHAMIDE
     Indication: NEUROBLASTOMA
     Dosage: 250 MG/M2, QD
     Route: 042
     Dates: start: 20200730, end: 20200803
  11. VENETOCLAX. [Suspect]
     Active Substance: VENETOCLAX
     Dosage: 250 MG 1 IN 1 D (TABLET FOR ORAL SUSPENSION)
     Route: 048
     Dates: end: 20200808
  12. VENETOCLAX. [Suspect]
     Active Substance: VENETOCLAX
     Dosage: 250 MG, QD
     Route: 048
     Dates: start: 20200730, end: 20200808
  13. ALLOPURINOL. [Concomitant]
     Active Substance: ALLOPURINOL
     Indication: PROPHYLAXIS
     Dosage: 100 MG, QD (1 IN 1 D)
     Route: 042
     Dates: start: 20200708, end: 20200713
  14. SPASFON LYOC [Concomitant]
     Active Substance: PHLOROGLUCINOL
     Indication: ABDOMINAL PAIN
     Dosage: 160 MG ((80 MG,2 IN 1 D))
     Route: 048
     Dates: start: 20200828
  15. ELECTROLYTES NOS [Concomitant]
     Active Substance: ELECTROLYTES NOS
     Indication: PROPHYLAXIS
     Dosage: 340 ML
     Route: 042
     Dates: start: 20200708, end: 20200713
  16. PENTACARINAT [Concomitant]
     Active Substance: PENTAMIDINE ISETHIONATE
     Indication: INFECTION PROPHYLAXIS
     Dosage: 300 MG, QD
     Route: 048
     Dates: start: 20210120, end: 20210120
  17. TOPOTECAN [Suspect]
     Active Substance: TOPOTECAN HYDROCHLORIDE
     Dosage: 250 MG/M2, QD
     Route: 065
     Dates: start: 20200708, end: 20201108
  18. VENETOCLAX. [Suspect]
     Active Substance: VENETOCLAX
     Dosage: 250 MG, QD
     Route: 048
     Dates: start: 20200713, end: 20200715
  19. VENETOCLAX. [Suspect]
     Active Substance: VENETOCLAX
     Dosage: 250 MG, QD
     Route: 048
     Dates: start: 20201007, end: 20201016
  20. INNOHEP [Concomitant]
     Active Substance: TINZAPARIN SODIUM
     Dosage: 3000 IU, QD (1 IN 1 D)
     Route: 042
     Dates: start: 20200718, end: 20200718
  21. INNOHEP [Concomitant]
     Active Substance: TINZAPARIN SODIUM
     Dosage: 3000 IU, QD (1 IN 1 D)
     Route: 058
     Dates: start: 20200717
  22. LOVENOX [Concomitant]
     Active Substance: ENOXAPARIN SODIUM
     Indication: THROMBOSIS
     Dosage: 1000 UI/J (1 IN 1 D)
     Route: 042
     Dates: start: 20201013
  23. INNOHEP [Concomitant]
     Active Substance: TINZAPARIN SODIUM
     Dosage: 3000 IU, QD (1 IN 1 D)
     Route: 058
     Dates: start: 20200706, end: 20200713
  24. TOPOTECAN [Suspect]
     Active Substance: TOPOTECAN HYDROCHLORIDE
     Indication: NEOPLASM MALIGNANT
     Dosage: 0.75 MG/M2, QD
     Route: 042
     Dates: start: 20200708, end: 20200712
  25. CYCLOPHOSPHAMIDE. [Suspect]
     Active Substance: CYCLOPHOSPHAMIDE
     Dosage: 0.75 MG/M2, QD
     Route: 042
     Dates: start: 20200708, end: 20201106
  26. INNOHEP [Concomitant]
     Active Substance: TINZAPARIN SODIUM
     Indication: THROMBOSIS
     Dosage: UNK
     Route: 042
  27. ATARAX [Concomitant]
     Active Substance: HYDROXYZINE HYDROCHLORIDE
     Indication: NAUSEA
  28. CYCLOPHOSPHAMIDE. [Suspect]
     Active Substance: CYCLOPHOSPHAMIDE
     Indication: NEOPLASM MALIGNANT
     Dosage: 250 MG/M2, QD
     Route: 042
     Dates: start: 20200708, end: 20200712
  29. CYCLOPHOSPHAMIDE. [Suspect]
     Active Substance: CYCLOPHOSPHAMIDE
     Dosage: 175 MG
     Route: 042
     Dates: start: 20210119, end: 20210125
  30. VENETOCLAX. [Suspect]
     Active Substance: VENETOCLAX
     Dosage: 250 MG, QD
     Route: 048
     Dates: start: 20201102, end: 20201111
  31. VENETOCLAX. [Suspect]
     Active Substance: VENETOCLAX
     Dosage: 250 MG, QD
     Route: 048
     Dates: start: 20210119, end: 20210128
  32. VENETOCLAX. [Suspect]
     Active Substance: VENETOCLAX
     Indication: NEOPLASM MALIGNANT
     Dosage: 120 MG 1 IN 1 D (TABLET FOR ORAL SUSPENSION) (1 IN 1 ? 2 X 5 DAYS EVERY 2?)
     Route: 048
     Dates: start: 20200706, end: 20200706
  33. VENETOCLAX. [Suspect]
     Active Substance: VENETOCLAX
     Dosage: 250 MG, QD
     Route: 048
     Dates: start: 20200914, end: 20200923
  34. ZOVIRAX [Concomitant]
     Active Substance: ACYCLOVIR
     Indication: HERPES VIRUS INFECTION
     Dosage: 540 MG (180 MG, 3 IN 1 D)
     Route: 042
     Dates: start: 20201021
  35. VOGALENE [Concomitant]
     Active Substance: METOPIMAZINE
     Indication: VOMITING
     Dosage: 15 MG, QD (5 MG, 3 IN 1 D)
     Route: 054
     Dates: start: 20210114, end: 20210116

REACTIONS (11)
  - Febrile neutropenia [Not Recovered/Not Resolved]
  - Febrile neutropenia [Recovered/Resolved]
  - Febrile bone marrow aplasia [Recovered/Resolved]
  - Febrile neutropenia [Recovered/Resolved]
  - Febrile neutropenia [Recovered/Resolved]
  - Product use issue [Unknown]
  - Lymphocyte count decreased [Recovered/Resolved]
  - Pyrexia [Not Recovered/Not Resolved]
  - Febrile neutropenia [Recovered/Resolved]
  - Lymphopenia [Unknown]
  - Febrile bone marrow aplasia [Unknown]

NARRATIVE: CASE EVENT DATE: 20200718
